FAERS Safety Report 9542693 (Version 1)
Quarter: 2013Q3

REPORT INFORMATION
  Report Type: Spontaneous
  Country: US (occurrence: US)
  Receive Date: 20130923
  Receipt Date: 20130923
  Transmission Date: 20140515
  Serious: Yes (Hospitalization)
  Sender: FDA-Public Use
  Company Number: US-ELI_LILLY_AND_COMPANY-US201309006200

PATIENT
  Sex: Female

DRUGS (3)
  1. HUMALOG LISPRO [Suspect]
     Indication: TYPE 1 DIABETES MELLITUS
     Dosage: UNK UNK, PRN
     Dates: start: 2002
  2. LANTUS [Concomitant]
     Dosage: 44 U, UNKNOWN
     Route: 058
  3. SYNTHROID [Concomitant]
     Dosage: 137 UG, UNKNOWN
     Route: 048

REACTIONS (2)
  - Diabetic ketoacidosis [Unknown]
  - Underdose [Unknown]
